FAERS Safety Report 5139298-3 (Version None)
Quarter: 2006Q4

REPORT INFORMATION
  Report Type: 
  Country: None (occurrence: None)
  Receive Date: 20061024
  Receipt Date: 20061013
  Transmission Date: 20070319
  Serious: Yes (Death)
  Sender: FDA-Public Use
  Company Number: 2006US002285

PATIENT
  Age: 37 Year
  Sex: Female

DRUGS (4)
  1. PROGRAF [Suspect]
     Indication: PROPHYLAXIS AGAINST TRANSPLANT REJECTION
     Dosage: 0.5 MG, UID/QD
  2. SIROLIMUS (SIROLIMUS) [Suspect]
     Indication: GRAFT VERSUS HOST DISEASE
     Dosage: 3 MG, UID/QD
  3. AMIBISOME (AMPHOCTERICIN B) [Concomitant]
  4. VORICONAZOLE [Suspect]
     Indication: LUNG NEOPLASM
     Dosage: 400 MG; UID; QD

REACTIONS (5)
  - DRUG TOXICITY [None]
  - LEUKOENCEPHALOPATHY [None]
  - RENAL FAILURE ACUTE [None]
  - SUBARACHNOID HAEMORRHAGE [None]
  - THROMBOTIC MICROANGIOPATHY [None]
